FAERS Safety Report 3942227 (Version 9)
Quarter: 2014Q3

REPORT INFORMATION
  Report Type: Spontaneous
  Country: JP (occurrence: JP)
  Receive Date: 20030428
  Receipt Date: 20140907
  Transmission Date: 20150326
  Serious: Yes (Hospitalization, Other)
  Sender: FDA-Public Use
  Company Number: PHBS2003JP02179

PATIENT
  Age: 66 Year
  Sex: Female
  Weight: 49 kg

DRUGS (7)
  1. GLIVEC [Suspect]
     Active Substance: IMATINIB MESYLATE
     Dosage: 300 MG, DAILY
     Route: 048
     Dates: start: 20020531, end: 20030206
  2. IDARUBICIN [Concomitant]
     Active Substance: IDARUBICIN
     Dosage: UNK UKN, UNK
  3. ARA-C [Concomitant]
     Active Substance: CYTARABINE
     Dosage: UNK UKN, UNK
  4. RETINOIC ACID [Concomitant]
     Active Substance: TRETINOIN
     Dosage: UNK UKN, UNK
  5. GLIVEC [Suspect]
     Active Substance: IMATINIB MESYLATE
     Dosage: 400 MG, DAILY
     Dates: start: 20030613, end: 20090521
  6. GLIVEC [Suspect]
     Active Substance: IMATINIB MESYLATE
     Dosage: UNK
     Dates: end: 200907
  7. GLIVEC [Suspect]
     Active Substance: IMATINIB MESYLATE
     Indication: CHRONIC MYELOID LEUKAEMIA
     Dosage: 400 MG, DAILY
     Route: 048
     Dates: start: 20020508, end: 20020530

REACTIONS (21)
  - Disseminated intravascular coagulation [Recovered/Resolved]
  - White blood cell count decreased [Recovering/Resolving]
  - Thrombocytopenia [Recovering/Resolving]
  - Conjunctival haemorrhage [Unknown]
  - Pancytopenia [Recovered/Resolved]
  - Gingival bleeding [Unknown]
  - Pneumonia [Recovered/Resolved]
  - Diastolic dysfunction [Unknown]
  - Petechiae [Unknown]
  - Chronic myeloid leukaemia transformation [Recovering/Resolving]
  - Pleural effusion [Unknown]
  - Pyrexia [Unknown]
  - Haemoglobin decreased [Unknown]
  - Cardiac failure [Unknown]
  - Brain natriuretic peptide increased [Unknown]
  - C-reactive protein increased [Unknown]
  - Haemorrhagic diathesis [Recovered/Resolved]
  - Cardiomegaly [Unknown]
  - Pericardial effusion [Unknown]
  - Cough [Unknown]
  - Productive cough [Unknown]

NARRATIVE: CASE EVENT DATE: 20020531
